FAERS Safety Report 5554830-3 (Version None)
Quarter: 2007Q4

REPORT INFORMATION
  Report Type: 
  Country: None (occurrence: None)
  Receive Date: 20071213
  Receipt Date: 20071205
  Transmission Date: 20080405
  Serious: Yes (Death)
  Sender: FDA-Public Use
  Company Number: JP-WYE-H01585407

PATIENT
  Sex: Female
  Weight: 22 kg

DRUGS (1)
  1. MYLOTARG [Suspect]
     Indication: ACUTE MYELOID LEUKAEMIA RECURRENT
     Route: 041
     Dates: start: 20070524, end: 20070524

REACTIONS (2)
  - PLEURAL EFFUSION [None]
  - URATE NEPHROPATHY [None]
